FAERS Safety Report 4332943-1 (Version None)
Quarter: 2004Q1

REPORT INFORMATION
  Report Type: 
  Country: None (occurrence: None)
  Receive Date: 20040330
  Receipt Date: 20040322
  Transmission Date: 20041129
  Serious: No
  Sender: FDA-Public Use
  Company Number: 2004UW02741

PATIENT
  Age: 63 Year
  Sex: Female
  Weight: 50.8029 kg

DRUGS (2)
  1. CRESTOR [Suspect]
     Indication: HYPERLIPIDAEMIA
     Dosage: 10 MG QD PO
     Route: 048
     Dates: start: 20040210, end: 20040213
  2. TENORETIC [Concomitant]

REACTIONS (2)
  - DYSARTHRIA [None]
  - FACIAL PALSY [None]
